FAERS Safety Report 21449226 (Version 3)
Quarter: 2022Q4

REPORT INFORMATION
  Report Type: Report from Study
  Country: CO (occurrence: CO)
  Receive Date: 20221013
  Receipt Date: 20221116
  Transmission Date: 20230113
  Serious: Yes (Other)
  Sender: FDA-Public Use
  Company Number: CO-NOVARTISPH-NVSC2022CO177372

PATIENT
  Sex: Male
  Weight: 78 kg

DRUGS (5)
  1. COSENTYX [Suspect]
     Active Substance: SECUKINUMAB
     Indication: Psoriatic arthropathy
     Dosage: 150 MG, QMO
     Route: 058
  2. COSENTYX [Suspect]
     Active Substance: SECUKINUMAB
     Dosage: 150 MG, QMO (MORE THAN 3 YEARS AGO)
     Route: 058
  3. COSENTYX [Suspect]
     Active Substance: SECUKINUMAB
     Dosage: UNK (15 DAYS AGO HE APPLIED THE MEDICATION)
     Route: 065
  4. BETAMETHASONE [Concomitant]
     Active Substance: BETAMETHASONE
     Indication: Asthma
     Dosage: UNK, Q12H (1 PUFF, SINCE 3 YEARS AGO)
  5. DESLORATADINE [Concomitant]
     Active Substance: DESLORATADINE
     Indication: Rhinitis
     Dosage: 500 MG, QD (SINCE 3 YEARS AGO)
     Route: 048

REACTIONS (5)
  - Umbilical hernia [Unknown]
  - Inguinal hernia [Unknown]
  - Pain in extremity [Not Recovered/Not Resolved]
  - Inflammation [Not Recovered/Not Resolved]
  - Psoriasis [Unknown]
